FAERS Safety Report 6165143-3 (Version None)
Quarter: 2009Q2

REPORT INFORMATION
  Report Type: 
  Country: None (occurrence: None)
  Receive Date: 20090421
  Receipt Date: 20090421
  Transmission Date: 20091009
  Serious: Yes (Hospitalization)
  Sender: FDA-Public Use
  Company Number: None

PATIENT
  Age: 37 Year
  Sex: Female
  Weight: 85.2762 kg

DRUGS (1)
  1. LEVORA 0.15/30-28 [Suspect]
     Dosage: 1 PILL PER DAY PO 1 PILL TAKEN
     Route: 048
     Dates: start: 20090419, end: 20090419

REACTIONS (5)
  - DIZZINESS [None]
  - DYSPNOEA [None]
  - FEELING ABNORMAL [None]
  - HEADACHE [None]
  - LOSS OF CONSCIOUSNESS [None]
